FAERS Safety Report 13389687 (Version 1)
Quarter: 2017Q1

REPORT INFORMATION
  Report Type: Spontaneous
  Country: US (occurrence: US)
  Receive Date: 20170330
  Receipt Date: 20170330
  Transmission Date: 20170429
  Serious: No
  Sender: FDA-Public Use
  Company Number: US-ELI_LILLY_AND_COMPANY-US201703010682

PATIENT
  Sex: Male

DRUGS (6)
  1. PIOGLITAZONE. [Concomitant]
     Active Substance: PIOGLITAZONE
  2. ATORVASTATIN [Concomitant]
     Active Substance: ATORVASTATIN
  3. ALLOPURINOL. [Concomitant]
     Active Substance: ALLOPURINOL
     Indication: GOUT
  4. LOSARTAN POTASSIUM. [Concomitant]
     Active Substance: LOSARTAN POTASSIUM
  5. ASPIRIN                            /00002701/ [Concomitant]
     Active Substance: ASPIRIN
  6. TRULICITY [Suspect]
     Active Substance: DULAGLUTIDE
     Indication: TYPE 2 DIABETES MELLITUS
     Dosage: 1.5 MG, UNKNOWN
     Route: 058
     Dates: start: 20170325

REACTIONS (5)
  - Nausea [Recovered/Resolved]
  - Cough [Unknown]
  - Weight decreased [Unknown]
  - Decreased appetite [Unknown]
  - Dyspepsia [Not Recovered/Not Resolved]
